FAERS Safety Report 10993793 (Version 1)
Quarter: 2015Q2

REPORT INFORMATION
  Report Type: Not Available
  Country: US (occurrence: US)
  Receive Date: 20150407
  Receipt Date: 20150407
  Transmission Date: 20150821
  Serious: No
  Sender: FDA-Public Use
  Company Number: US-LUPIN PHARMACEUTICALS INC.-E2B_00003271

PATIENT
  Sex: Male

DRUGS (1)
  1. DULOXETINE [Suspect]
     Active Substance: DULOXETINE
     Indication: PARALYSIS

REACTIONS (3)
  - Drug ineffective for unapproved indication [Unknown]
  - Tremor [Unknown]
  - Product quality issue [Unknown]
